FAERS Safety Report 10951401 (Version 1)
Quarter: 2015Q1

REPORT INFORMATION
  Report Type: Spontaneous
  Country: AT (occurrence: AT)
  Receive Date: 20150324
  Receipt Date: 20150324
  Transmission Date: 20150721
  Serious: Yes (Other)
  Sender: FDA-Public Use
  Company Number: AT-WATSON-2015-05690

PATIENT
  Sex: Male

DRUGS (1)
  1. HALOPERIDOL (UNKNOWN) [Suspect]
     Active Substance: HALOPERIDOL
     Indication: SCHIZOPHRENIA, PARANOID TYPE
     Dosage: 150 MG, 1/ THREE WEEKS
     Route: 030

REACTIONS (1)
  - Extrapyramidal disorder [Unknown]
